FAERS Safety Report 6519559-3 (Version None)
Quarter: 2009Q4

REPORT INFORMATION
  Report Type: 
  Country: None (occurrence: None)
  Receive Date: 20091228
  Receipt Date: 20091215
  Transmission Date: 20100525
  Serious: No
  Sender: FDA-Public Use
  Company Number: US-B.I. PHARMACEUTICALS,INC./RIDGEFIELD-2009-BP-14496BP

PATIENT

DRUGS (1)
  1. MICARDIS [Suspect]

REACTIONS (1)
  - HYPERKALAEMIA [None]
